FAERS Safety Report 12090562 (Version 6)
Quarter: 2016Q1

REPORT INFORMATION
  Report Type: Report from Study
  Country: CZ (occurrence: CZ)
  Receive Date: 20160218
  Receipt Date: 20160323
  Transmission Date: 20160526
  Serious: Yes (Hospitalization)
  Sender: FDA-Public Use
  Company Number: CZ-BIOGEN-2016BI00187273

PATIENT
  Age: 62 Year
  Sex: Female
  Weight: 78 kg

DRUGS (4)
  1. EGLYMAD [Concomitant]
     Indication: DIABETES MELLITUS
     Route: 048
     Dates: start: 20151119
  2. BG00012 [Suspect]
     Active Substance: DIMETHYL FUMARATE
     Indication: MULTIPLE SCLEROSIS
     Route: 048
     Dates: start: 20151216
  3. PRESTARIUM NEO COMBI [Concomitant]
     Active Substance: INDAPAMIDE\PERINDOPRIL ARGININE
     Indication: HYPERTENSION
     Dosage: 10/2.5 MG
     Route: 048
     Dates: start: 20091215
  4. EUCREAS [Concomitant]
     Active Substance: METFORMIN HYDROCHLORIDE\VILDAGLIPTIN
     Indication: DIABETES MELLITUS
     Dosage: 50/1000 MG
     Route: 048
     Dates: start: 20150527

REACTIONS (1)
  - Genital herpes [Recovered/Resolved]

NARRATIVE: CASE EVENT DATE: 20160126
